FAERS Safety Report 4385314-6 (Version None)
Quarter: 2004Q2

REPORT INFORMATION
  Report Type: 
  Country: None (occurrence: None)
  Receive Date: 20040622
  Receipt Date: 20040608
  Transmission Date: 20050107
  Serious: Yes (Hospitalization)
  Sender: FDA-Public Use
  Company Number: US-JNJFOC-20040602211

PATIENT
  Sex: Female

DRUGS (1)
  1. REMICADE [Suspect]
     Indication: RHEUMATOID ARTHRITIS
     Dosage: 500 MG, INTRAVENOUS
     Route: 042
     Dates: start: 20040604

REACTIONS (6)
  - ABDOMINAL DISCOMFORT [None]
  - ABDOMINAL PAIN [None]
  - DIARRHOEA [None]
  - INFUSION RELATED REACTION [None]
  - NAUSEA [None]
  - VOMITING [None]
